FAERS Safety Report 8947794 (Version 1)
Quarter: 2012Q4

REPORT INFORMATION
  Report Type: 
  Country: US (occurrence: None)
  Receive Date: 20121127
  Receipt Date: 20121127
  Transmission Date: 20130627
  Serious: Yes (Hospitalization)
  Sender: FDA-Public Use
  Company Number: 200152355-AKO-5137B

PATIENT
  Age: 38 Year
  Sex: Male

DRUGS (2)
  1. MIDAZOLAM [Suspect]
     Indication: ANALGESIA
     Dosage: OT
     Route: 042
     Dates: start: 20121109, end: 20121109
  2. FENTANYL [Suspect]
     Indication: ANALGESIA
     Dosage: OT
     Route: 042
     Dates: start: 20121109, end: 20121109

REACTIONS (1)
  - Cerebrovascular accident [None]
